FAERS Safety Report 9327843 (Version 4)
Quarter: 2013Q4

REPORT INFORMATION
  Report Type: Spontaneous
  Country: US (occurrence: US)
  Receive Date: 20130604
  Receipt Date: 20131108
  Transmission Date: 20140711
  Serious: Yes (Hospitalization)
  Sender: FDA-Public Use
  Company Number: US-AMGEN-USASP2013037509

PATIENT
  Age: 48 Year
  Sex: Female
  Weight: 85.26 kg

DRUGS (11)
  1. ENBREL [Suspect]
     Indication: ANKYLOSING SPONDYLITIS
     Dosage: 50 MG, QWK
     Route: 058
     Dates: start: 20130515, end: 201305
  2. OMEPRAZOLE [Concomitant]
     Dosage: UNK
  3. DIOVAN [Concomitant]
     Dosage: UNK
  4. PROZAC [Concomitant]
     Dosage: UNK
  5. MVI [Concomitant]
     Dosage: UNK
  6. CAL-D [Concomitant]
     Dosage: UNK
  7. VIT D [Concomitant]
     Dosage: UNK
  8. B 12 [Concomitant]
     Dosage: UNK
  9. KLONOPIN [Concomitant]
     Dosage: UNK
  10. PENTASA [Concomitant]
     Indication: PANCREATITIS ACUTE
     Dosage: UNK
  11. WELLBUTRIN [Concomitant]
     Indication: PANCREATITIS ACUTE
     Dosage: UNK

REACTIONS (4)
  - Pancreatitis acute [Recovered/Resolved]
  - Abdominal pain upper [Recovered/Resolved]
  - Gastrointestinal sounds abnormal [Not Recovered/Not Resolved]
  - Fatigue [Not Recovered/Not Resolved]
